FAERS Safety Report 4565157-0 (Version None)
Quarter: 2005Q1

REPORT INFORMATION
  Report Type: 
  Country: None (occurrence: None)
  Receive Date: 20050127
  Receipt Date: 20050127
  Transmission Date: 20050727
  Serious: No
  Sender: FDA-Public Use
  Company Number: None

PATIENT
  Age: 42 Year
  Sex: Female
  Weight: 73.4827 kg

DRUGS (1)
  1. OLANZAPINE [Suspect]
     Dosage: 15MG PO
     Route: 048
     Dates: start: 20031121, end: 20040505

REACTIONS (1)
  - WEIGHT INCREASED [None]
